FAERS Safety Report 25311580 (Version 5)
Quarter: 2025Q4

REPORT INFORMATION
  Report Type: Other
  Country: GB (occurrence: GB)
  Receive Date: 20250514
  Receipt Date: 20251210
  Transmission Date: 20260118
  Serious: Yes (Disabling, Other)
  Sender: STRIDES
  Company Number: GB-Accord-481330

PATIENT
  Age: 68 Year
  Sex: Male
  Weight: 153 kg

DRUGS (28)
  1. PREDNISOLONE [Suspect]
     Active Substance: PREDNISOLONE
     Indication: Giant cell arteritis
     Dosage: 100 MILLIGRAM, QD
     Route: 065
  2. PREDNISOLONE [Suspect]
     Active Substance: PREDNISOLONE
     Dosage: 40 MILLIGRAM, QD
     Route: 065
     Dates: start: 2025, end: 2025
  3. PREDNISOLONE [Suspect]
     Active Substance: PREDNISOLONE
     Dosage: 60 MILLIGRAM, QD
     Route: 065
     Dates: start: 202405, end: 2025
  4. PREDNISOLONE [Suspect]
     Active Substance: PREDNISOLONE
     Dosage: STRENGTH: 10 MG, ONCE DAILY
     Route: 048
     Dates: start: 2025, end: 2025
  5. PREDNISOLONE [Suspect]
     Active Substance: PREDNISOLONE
     Dosage: 12 MILLIGRAM, QD (12 MG DAILY)
     Route: 065
     Dates: start: 2025
  6. PREDNISOLONE [Suspect]
     Active Substance: PREDNISOLONE
     Dosage: 2.5MG, AS PER TAPERINGREGIMEN, 56 TABLET
     Route: 065
  7. PREDNISOLONE [Suspect]
     Active Substance: PREDNISOLONE
     Dosage: 5MG, ONCE A DAY, 28 TABLETS
     Route: 065
     Dates: start: 20250416, end: 2025
  8. CALCIUM [Concomitant]
     Active Substance: CALCIUM
     Indication: Product used for unknown indication
     Dosage: UNK
     Route: 065
  9. VITAMIN D NOS [Concomitant]
     Active Substance: CHOLECALCIFEROL\ERGOCALCIFEROL
     Indication: Product used for unknown indication
     Dosage: UNK
     Route: 065
  10. FLUOXETINE [Concomitant]
     Active Substance: FLUOXETINE HYDROCHLORIDE
     Indication: Depression
     Dosage: 20 MILLIGRAM, QD (DAILY) (STRENGTH: 20 MG, DAILY)
     Route: 048
     Dates: start: 20190115
  11. OLANZAPINE [Concomitant]
     Active Substance: OLANZAPINE
     Indication: Schizophrenia
     Dosage: 10 MILLIGRAM, QD, (DAILY) (STRENGTH: 10 MG, ONCE DALIY)
     Route: 048
     Dates: start: 20190530
  12. OLANZAPINE [Concomitant]
     Active Substance: OLANZAPINE
     Dosage: 10 MG, ONCE TO BE TAKEN EACH DAY, 7 TABLET
     Route: 048
     Dates: start: 20250918
  13. OMEPRAZOLE [Concomitant]
     Active Substance: OMEPRAZOLE
     Indication: Product used for unknown indication
     Dosage: ONE TO BE TAKEN, 14 CAPSULE
     Route: 048
     Dates: start: 20250918
  14. THIAMINE [Concomitant]
     Active Substance: THIAMINE
     Indication: Product used for unknown indication
     Dosage: 100 MILLIGRAM, QD, (100 MG TDS)/STRENGTH: 100 MG OD
     Route: 048
     Dates: start: 20190221
  15. THIAMINE [Concomitant]
     Active Substance: THIAMINE
     Dosage: ONE TO BE TAKEN THREE TIMES A DAY, 21 TABLET
     Route: 048
     Dates: start: 20250918
  16. CARBAMAZEPINE [Concomitant]
     Active Substance: CARBAMAZEPINE
     Indication: Product used for unknown indication
     Dosage: 100 MILLIGRAM, QD, (BD)
     Route: 065
  17. CARBAMAZEPINE [Concomitant]
     Active Substance: CARBAMAZEPINE
     Dosage: 100 MG, ONE TABLET TWICE A DAY, 14 TABLET
     Route: 048
     Dates: start: 20250918
  18. ASPIRIN [Concomitant]
     Active Substance: ASPIRIN
     Indication: Product used for unknown indication
     Dosage: 75 MILLIGRAM, QD, (DAILY)
     Route: 065
  19. ASPIRIN [Concomitant]
     Active Substance: ASPIRIN
     Dosage: ONE TO BE TAKEN EACH DAY, 7 TABLET
     Route: 048
     Dates: start: 20250918
  20. METFORMIN [Concomitant]
     Active Substance: METFORMIN HYDROCHLORIDE
     Indication: Product used for unknown indication
     Dosage: ONE TO BE TAKEN TWICE A DAY, 14 TABLET
     Route: 048
     Dates: start: 20250918
  21. OLMESARTAN [Concomitant]
     Active Substance: OLMESARTAN
     Indication: Product used for unknown indication
     Dosage: ONE TO BE TAKEN EACH DAY, 7 TABLET
     Route: 048
     Dates: start: 20250918
  22. AMITRIPTYLINE [Concomitant]
     Active Substance: AMITRIPTYLINE
     Indication: Product used for unknown indication
     Dosage: 25MG, ONE TO BE TAKEN TWICE A DAY, 14 TABLET
     Route: 048
  23. AMLODIPINE [Concomitant]
     Active Substance: AMLODIPINE BESYLATE
     Indication: Product used for unknown indication
     Dosage: ONE TO BE TAKEN EACH DAY, 7 TABLET
     Route: 048
     Dates: start: 20250918
  24. ATORVASTATIN [Concomitant]
     Active Substance: ATORVASTATIN
     Indication: Hyperlipidaemia
     Dosage: 40 MILLIGRAMS (STRENGTH: 40MG)
     Route: 048
     Dates: start: 20190221
  25. ATORVASTATIN [Concomitant]
     Active Substance: ATORVASTATIN
     Dosage: STRENGTH: 40MG, ONE TO BE TAKEN EACH DAY, 7 TABLE
     Route: 048
     Dates: start: 20250918
  26. DAPAGLIFLOZIN [Concomitant]
     Active Substance: DAPAGLIFLOZIN
     Indication: Product used for unknown indication
     Dosage: ONE TO BE TAKEN DAILY, 7 TABLET
     Route: 048
     Dates: start: 20250918
  27. COCODAMOL [Concomitant]
     Active Substance: ACETAMINOPHEN\CODEINE PHOSPHATE
     Indication: Product use in unapproved indication
     Dosage: 30MG/500MG TABLETS, TWO TO BE TAKEN FOUR TIME A DAY WHEN REQUIRED, 100 TABLET
     Route: 048
     Dates: start: 20251001
  28. Comirnaty [Concomitant]
     Indication: Product use in unapproved indication
     Dosage: 30MICROGRAMS/0.3ML, MULTIDOSE VIALS, 0.3 ML
     Route: 030
     Dates: start: 20241009

REACTIONS (19)
  - Skin cancer [Unknown]
  - Malignant melanoma [Recovered/Resolved]
  - Dyspnoea exertional [Unknown]
  - Obstructive sleep apnoea syndrome [Unknown]
  - Circulatory collapse [Unknown]
  - Withdrawal syndrome [Unknown]
  - Schizophrenia [Unknown]
  - Type 2 diabetes mellitus [Not Recovered/Not Resolved]
  - Cataract [Not Recovered/Not Resolved]
  - Osteomyelitis [Unknown]
  - Joint swelling [Unknown]
  - Peripheral swelling [Recovering/Resolving]
  - Full blood count decreased [Unknown]
  - Gait disturbance [Unknown]
  - Kyphosis [Unknown]
  - Abnormal weight gain [Unknown]
  - Hypertension [Unknown]
  - Cushingoid [Unknown]
  - Drug ineffective [Unknown]

NARRATIVE: CASE EVENT DATE: 20240711
